FAERS Safety Report 9243200 (Version 1)
Quarter: 2013Q2

REPORT INFORMATION
  Report Type: Spontaneous
  Country: BR (occurrence: BR)
  Receive Date: 20130419
  Receipt Date: 20130419
  Transmission Date: 20140414
  Serious: Yes (Hospitalization, Other)
  Sender: FDA-Public Use
  Company Number: BR-ASTRAZENECA-2013SE25488

PATIENT
  Age: 781 Month
  Sex: Male
  Weight: 80 kg

DRUGS (12)
  1. ATACAND HCT [Suspect]
     Indication: HYPERTENSION
     Dosage: 16/12.5MG, TWO TIMES A DAY
     Route: 048
     Dates: start: 2010
  2. SELOZOK [Suspect]
     Indication: HYPERTENSION
     Route: 048
     Dates: start: 2010
  3. CRESTOR [Suspect]
     Route: 048
     Dates: start: 2010
  4. MONOCORDIL [Suspect]
     Dosage: UNKNOWN DOSE, TWO TIMES A DAY.
     Route: 048
     Dates: start: 20130412
  5. BRILINTA [Suspect]
     Route: 048
     Dates: start: 20130412
  6. OMEPRAZOLE (TEUTO MANUFACTURER) [Suspect]
     Indication: GASTRITIS PROPHYLAXIS
     Route: 065
     Dates: start: 2010
  7. SOMALGIN [Concomitant]
     Dates: start: 2010
  8. CLOPIDOGREL BISULFATE [Concomitant]
     Dates: start: 2010
  9. GLIFAGE [Concomitant]
     Dates: start: 2010
  10. DOXAZOSIN [Concomitant]
     Dates: start: 2010
  11. PROSTAT [Concomitant]
     Indication: PROSTATIC DISORDER
     Dates: start: 2008
  12. VALERIANE [Concomitant]
     Indication: INSOMNIA
     Dates: start: 2010

REACTIONS (4)
  - Coronary artery occlusion [Recovered/Resolved]
  - Chest pain [Recovered/Resolved]
  - Fatigue [Recovered/Resolved]
  - Headache [Not Recovered/Not Resolved]
